FAERS Safety Report 4391242-2 (Version None)
Quarter: 2004Q2

REPORT INFORMATION
  Report Type: 
  Country: None (occurrence: None)
  Receive Date: 20040621
  Receipt Date: 20031231
  Transmission Date: 20050107
  Serious: Yes (Hospitalization, Other)
  Sender: FDA-Public Use
  Company Number: USA-2002-0003017

PATIENT
  Age: 44 Year
  Sex: Male
  Weight: 79.4 kg

DRUGS (14)
  1. OXYCONTIN [Suspect]
     Indication: PAIN
     Dosage: 20 MG BID, INTRAVENOUS
     Route: 042
     Dates: start: 20000501, end: 20010801
  2. ALCOHOL (ETHANOL) [Suspect]
  3. XANAX [Concomitant]
  4. ZIAC [Concomitant]
  5. SOMA [Concomitant]
  6. MARIJUANA [Concomitant]
  7. LORTAB [Concomitant]
  8. ATIVAN [Concomitant]
  9. VALIUM [Concomitant]
  10. BEXTRA [Concomitant]
  11. TOPROL-XL [Concomitant]
  12. ASPIRIN [Concomitant]
  13. MOTRIN [Concomitant]
  14. HYDROCHLOROTHIAZIDE [Concomitant]

REACTIONS (21)
  - CONSTIPATION [None]
  - DEPRESSION [None]
  - DIARRHOEA [None]
  - DRUG ABUSER [None]
  - DRUG DEPENDENCE [None]
  - DRUG TOLERANCE [None]
  - DRUG WITHDRAWAL SYNDROME [None]
  - HEADACHE [None]
  - HYPERHIDROSIS [None]
  - HYPOAESTHESIA [None]
  - INSOMNIA [None]
  - IRRITABILITY [None]
  - MUSCLE CRAMP [None]
  - NAUSEA [None]
  - NERVOUSNESS [None]
  - NIGHTMARE [None]
  - PAIN [None]
  - PARAESTHESIA [None]
  - ROAD TRAFFIC ACCIDENT [None]
  - TREMOR [None]
  - VOMITING [None]
